FAERS Safety Report 4639241-7 (Version None)
Quarter: 2005Q2

REPORT INFORMATION
  Report Type: 
  Country: None (occurrence: None)
  Receive Date: 20050418
  Receipt Date: 20050408
  Transmission Date: 20051028
  Serious: No
  Sender: FDA-Public Use
  Company Number: 2005-127342-NL

PATIENT
  Age: 74 Year

DRUGS (4)
  1. MIRTAZAPINE [Suspect]
     Indication: DEPRESSION
     Dosage: 45 MG ORAL
     Route: 048
     Dates: start: 20041220, end: 20050104
  2. AMITRIPTYLINE HCL TAB [Concomitant]
  3. LANSOPRAZOLE [Concomitant]
  4. QUININE SULPHATE [Concomitant]

REACTIONS (1)
  - DYSPHAGIA [None]
